FAERS Safety Report 18148560 (Version 3)
Quarter: 2023Q4

REPORT INFORMATION
  Report Type: Report from Study
  Country: US (occurrence: US)
  Receive Date: 20200814
  Receipt Date: 20231228
  Transmission Date: 20240110
  Serious: Yes (Disabling, Other)
  Sender: FDA-Public Use
  Company Number: US-HORIZON-TEP-1199-2020

PATIENT

DRUGS (13)
  1. TEPEZZA [Suspect]
     Active Substance: TEPROTUMUMAB-TRBW
     Indication: Endocrine ophthalmopathy
     Dosage: FIRST INFUSION
     Route: 042
     Dates: start: 20200310
  2. XANAX [Concomitant]
     Active Substance: ALPRAZOLAM
  3. LEVOTHYROXINE [Concomitant]
     Active Substance: LEVOTHYROXINE
  4. Aleve/aspirin [Concomitant]
  5. TRAZODONE [Concomitant]
     Active Substance: TRAZODONE HYDROCHLORIDE
  6. DIETHYLPROPION [Concomitant]
     Active Substance: DIETHYLPROPION
  7. ESOMEPRAZOLE [Concomitant]
     Active Substance: ESOMEPRAZOLE
  8. CALCIUM [Concomitant]
     Active Substance: CALCIUM
  9. HERBALS\TURMERIC [Concomitant]
     Active Substance: HERBALS\TURMERIC
  10. SELENIUM [Concomitant]
     Active Substance: SELENIUM
  11. DIETARY SUPPLEMENT\RESVERATROL [Concomitant]
     Active Substance: DIETARY SUPPLEMENT\RESVERATROL
  12. FIBER [Concomitant]
  13. GARLIQUE [Concomitant]
     Active Substance: GARLIC

REACTIONS (25)
  - Physical disability [Not Recovered/Not Resolved]
  - Food allergy [Recovered/Resolved]
  - Neuropathy peripheral [Recovered/Resolved]
  - Deafness [Not Recovered/Not Resolved]
  - Hypoacusis [Unknown]
  - Myalgia [Not Recovered/Not Resolved]
  - Constipation [Unknown]
  - Insomnia [Recovered/Resolved]
  - Cognitive disorder [Not Recovered/Not Resolved]
  - Dizziness [Not Recovered/Not Resolved]
  - Oral mucosal blistering [Unknown]
  - Tongue blistering [Recovered/Resolved]
  - Condition aggravated [Unknown]
  - Muscle spasms [Unknown]
  - Neck pain [Unknown]
  - Thirst [Unknown]
  - Concomitant disease aggravated [Not Recovered/Not Resolved]
  - Injury [Not Recovered/Not Resolved]
  - Pain [Unknown]
  - Anxiety [Not Recovered/Not Resolved]
  - Emotional distress [Not Recovered/Not Resolved]
  - Impaired quality of life [Not Recovered/Not Resolved]
  - Economic problem [Not Recovered/Not Resolved]
  - Inappropriate schedule of product administration [Unknown]
  - Product quality issue [Unknown]

NARRATIVE: CASE EVENT DATE: 20200723
